FAERS Safety Report 10086636 (Version 1)
Quarter: 2014Q2

REPORT INFORMATION
  Report Type: Spontaneous
  Country: GB (occurrence: GB)
  Receive Date: 20140418
  Receipt Date: 20140418
  Transmission Date: 20141212
  Serious: Yes (Hospitalization, Other)
  Sender: FDA-Public Use
  Company Number: GB-PFIZER INC-2014108995

PATIENT
  Age: 67 Year
  Sex: Female

DRUGS (3)
  1. LYRICA [Suspect]
     Indication: ANXIETY
     Dosage: UNK
     Dates: start: 2013
  2. VENLAFAXINE [Concomitant]
     Dosage: 75 MG, UNK
  3. ZOLPIDEM TARTRATE [Concomitant]
     Dosage: 10 MG, AT NIGHT

REACTIONS (2)
  - Wrist fracture [Recovered/Resolved]
  - Fall [Recovered/Resolved]
